FAERS Safety Report 10183731 (Version 1)
Quarter: 2014Q2

REPORT INFORMATION
  Report Type: Spontaneous
  Country: US (occurrence: US)
  Receive Date: 20140520
  Receipt Date: 20140520
  Transmission Date: 20141212
  Serious: Yes (Disabling, Other)
  Sender: FDA-Public Use
  Company Number: US-PFIZER INC-2014138210

PATIENT
  Sex: Male

DRUGS (1)
  1. MS CONTIN [Suspect]
     Indication: BACK PAIN
     Dosage: 100 MG, 2X/DAY
     Route: 048

REACTIONS (10)
  - Renal failure acute [Unknown]
  - Rhabdomyolysis [Unknown]
  - Mobility decreased [Unknown]
  - Dehydration [Unknown]
  - Hypotension [Unknown]
  - Delirium [Unknown]
  - Depressed level of consciousness [Unknown]
  - Hypoxia [Unknown]
  - Pain [Unknown]
  - Anxiety [Unknown]
